FAERS Safety Report 21082166 (Version 1)
Quarter: 2022Q3

REPORT INFORMATION
  Report Type: Report from Study
  Country: BE (occurrence: BE)
  Receive Date: 20220714
  Receipt Date: 20220714
  Transmission Date: 20221027
  Serious: Yes (Hospitalization, Other)
  Sender: FDA-Public Use
  Company Number: BE-ROCHE-2882515

PATIENT
  Age: 73 Year
  Sex: Female
  Weight: 79.2 kg

DRUGS (25)
  1. CARBOPLATIN [Suspect]
     Active Substance: CARBOPLATIN
     Indication: Small cell lung cancer extensive stage
     Dosage: UNIT DOSE :375MG,
     Route: 065
     Dates: start: 20210715
  2. ETOPOSIDE [Suspect]
     Active Substance: ETOPOSIDE
     Indication: Small cell lung cancer extensive stage
     Dosage: UNIT DOSE : 194 MG
     Route: 065
     Dates: start: 20210715
  3. ATEZOLIZUMAB [Suspect]
     Active Substance: ATEZOLIZUMAB
     Indication: Small cell lung cancer extensive stage
     Dosage: RECEIVED BEFORE SIGNING THE INFORMED CONSENT, UNIT DOSE : 1200MG
     Route: 065
     Dates: start: 20210715
  4. ATEZOLIZUMAB [Suspect]
     Active Substance: ATEZOLIZUMAB
     Dosage: VISIT 1, UNIT DOSE :1200MG
     Dates: start: 20210804
  5. NEULASTA [Concomitant]
     Active Substance: PEGFILGRASTIM
     Indication: Product used for unknown indication
     Dosage: DURATION : 61 DAYS
     Dates: start: 20210719, end: 20210917
  6. 3M CAVILON ANTIFUNGAL [Concomitant]
     Active Substance: MICONAZOLE NITRATE
     Indication: Product used for unknown indication
     Dosage: FREQUENCY TIME : 1 DAY
     Dates: start: 20210916, end: 202109
  7. BILASTINE [Concomitant]
     Active Substance: BILASTINE
     Indication: Prophylaxis
     Dosage: FREQUENCY TIME : 1 DAY
     Dates: start: 202110
  8. MAGNESIUM [Concomitant]
     Active Substance: MAGNESIUM
     Indication: Product used for unknown indication
     Dosage: FREQUENCY TIME : 1 DAY, DURATION : 72 DAYS
     Dates: start: 20210716, end: 20210925
  9. AKYNZEO [Concomitant]
     Indication: Product used for unknown indication
     Dosage: FREQUENCY TIME : 1 MONTH,  DURATION :63 DAYS
     Dates: start: 20210715, end: 20210915
  10. BISOPROLOL [Concomitant]
     Active Substance: BISOPROLOL
     Indication: Product used for unknown indication
     Dosage: FREQUENCY TIME : 1 DAY
  11. ULTRA K [Concomitant]
     Indication: Product used for unknown indication
     Dosage: FREQUENCY TIME : 1 DAY
     Dates: start: 20210728
  12. PERINDOPRIL [Concomitant]
     Active Substance: PERINDOPRIL
     Indication: Product used for unknown indication
     Dosage: FREQUENCY TIME : 1 DAY
  13. AVELOX [Concomitant]
     Active Substance: MOXIFLOXACIN HYDROCHLORIDE
     Indication: Product used for unknown indication
     Dosage: FREQUENCY TIME : 1 DAY, DURATION :5 DAYS
     Dates: start: 20211117, end: 20211121
  14. POTASSIUM CHLORIDE [Concomitant]
     Active Substance: POTASSIUM CHLORIDE
     Indication: Product used for unknown indication
     Dosage: FREQUENCY TIME : 1 DAY,  DURATION :2 DAYS
     Dates: start: 20210729, end: 20210730
  15. LEVOFLOXACIN [Concomitant]
     Active Substance: LEVOFLOXACIN
     Indication: Product used for unknown indication
     Dosage: FREQUENCY TIME : 1 DAY,  DURATION :4 DAYS
     Dates: start: 20210723, end: 20210726
  16. BECLOMETHASONE DIPROPIONATE\FORMOTEROL FUMARATE [Concomitant]
     Active Substance: BECLOMETHASONE DIPROPIONATE\FORMOTEROL FUMARATE
     Indication: Product used for unknown indication
     Dosage: FREQUENCY TIME : 0.5  DAY
     Dates: start: 20210715
  17. PLASMALYTE A [Concomitant]
     Indication: Product used for unknown indication
     Dosage: FREQUENCY TIME : 1 DAY,  DURATION :2 DAYS
     Dates: start: 20210726, end: 20210727
  18. SODIUM CHLORIDE [Concomitant]
     Active Substance: SODIUM CHLORIDE
     Indication: Product used for unknown indication
     Dosage: DURATION : 2 DAYS, FREQUENCY TIME : 1 DAY
     Dates: start: 20210729, end: 20210730
  19. ASPIRIN [Concomitant]
     Active Substance: ASPIRIN
     Indication: Product used for unknown indication
     Dosage: FREQUENCY TIME : 1 DAY, DURATION : 1 DAY
     Dates: start: 20210927, end: 20210927
  20. AMOCLANE [Concomitant]
     Indication: Product used for unknown indication
     Dosage: FREQUENCY TIME : 1 DAY
     Dates: start: 20210728
  21. PRAVASTATIN [Concomitant]
     Active Substance: PRAVASTATIN
     Indication: Product used for unknown indication
     Dosage: FREQUENCY TIME : 1 DAY
  22. CEFTAZIDIME [Concomitant]
     Active Substance: CEFTAZIDIME
     Indication: Product used for unknown indication
     Dosage: FREQUENCY TIME : 1 DAY, DURATION : 3 DAYS
     Dates: start: 20210726, end: 20210728
  23. ALIZAPRIDE HYDROCHLORIDE [Concomitant]
     Active Substance: ALIZAPRIDE HYDROCHLORIDE
     Indication: Product used for unknown indication
     Dosage: LITICAN [ALIZAPRIDE HYDROCHLORIDE],DURATION :1 DAY
     Dates: start: 20210717, end: 20210717
  24. POLYETHYLENE GLYCOL 3350\POTASSIUM CHLORIDE\SODIUM BICARBONATE\SODIUM [Concomitant]
     Active Substance: POLYETHYLENE GLYCOL 3350\POTASSIUM CHLORIDE\SODIUM BICARBONATE\SODIUM CHLORIDE
     Indication: Product used for unknown indication
     Dosage: FREQUENCY TIME : 1 DAY
  25. CHOLECALCIFEROL [Concomitant]
     Active Substance: CHOLECALCIFEROL
     Indication: Product used for unknown indication
     Dosage: FREQUENCY TIME : 1 DAY
     Dates: start: 20210716

REACTIONS (10)
  - Hypokalaemia [Recovered/Resolved]
  - Acute kidney injury [Recovered/Resolved]
  - Hypothyroidism [Recovered/Resolved]
  - Neutropenia [Recovered/Resolved]
  - C-reactive protein increased [Recovered/Resolved]
  - Oedema peripheral [Recovered/Resolved]
  - Decreased appetite [Not Recovered/Not Resolved]
  - C-reactive protein increased [Recovered/Resolved]
  - Haematoma [Recovered/Resolved]
  - Fall [Recovered/Resolved]

NARRATIVE: CASE EVENT DATE: 20210717
